FAERS Safety Report 17967561 (Version 1)
Quarter: 2020Q3

REPORT INFORMATION
  Report Type: Spontaneous
  Country: US (occurrence: US)
  Receive Date: 20200701
  Receipt Date: 20200701
  Transmission Date: 20201103
  Serious: Yes (Death, Other)
  Sender: FDA-Public Use
  Company Number: US-DRREDDYS-USA/USA/20/0124678

PATIENT
  Age: 33 Year
  Sex: Female

DRUGS (1)
  1. OXYTOCIN. [Suspect]
     Active Substance: OXYTOCIN
     Indication: LABOUR INDUCTION
     Route: 065

REACTIONS (2)
  - Anaphylactoid syndrome of pregnancy [Fatal]
  - Cardiopulmonary failure [Unknown]
